FAERS Safety Report 10129030 (Version 1)
Quarter: 2014Q2

REPORT INFORMATION
  Report Type: Report from Study
  Country: FR (occurrence: FR)
  Receive Date: 20140428
  Receipt Date: 20140428
  Transmission Date: 20141212
  Serious: Yes (Hospitalization)
  Sender: FDA-Public Use
  Company Number: FR-ROCHE-1389529

PATIENT
  Sex: Male

DRUGS (1)
  1. BEVACIZUMAB [Suspect]
     Indication: SMALL CELL LUNG CANCER
     Route: 065
     Dates: start: 20110125, end: 20110603

REACTIONS (2)
  - Asthenia [Recovered/Resolved]
  - Phlebitis superficial [Recovered/Resolved]
